FAERS Safety Report 8620948-1 (Version None)
Quarter: 2012Q3

REPORT INFORMATION
  Report Type: 
  Country: None (occurrence: None)
  Receive Date: 20120824
  Receipt Date: 20120817
  Transmission Date: 20120928
  Serious: Yes (Disabling)
  Sender: FDA-Public Use
  Company Number: AU-BAXTER-2012BAX014815

PATIENT
  Sex: Female

DRUGS (11)
  1. BACTRIM DS [Concomitant]
     Route: 048
     Dates: start: 20120417
  2. KIOVIG [Suspect]
     Route: 042
     Dates: start: 20120321, end: 20120817
  3. ARMODAFINIL [Concomitant]
     Route: 048
     Dates: start: 20120417
  4. FOLIC ACID [Concomitant]
     Route: 048
     Dates: start: 20120417
  5. SERTRALINE HYDROCHLORIDE [Concomitant]
     Route: 048
     Dates: start: 20120417
  6. POTASSIUM [Concomitant]
     Route: 048
     Dates: start: 20120417
  7. NEXIUM [Concomitant]
     Route: 048
     Dates: start: 20120417
  8. VALTREX [Concomitant]
     Route: 048
     Dates: start: 20120417
  9. LEVOTHYROXINE SODIUM [Concomitant]
     Route: 048
     Dates: start: 20120417
  10. KIOVIG [Suspect]
     Route: 042
     Dates: start: 20120321, end: 20120817
  11. PREDNISONE TAB [Concomitant]
     Route: 048
     Dates: start: 20120417

REACTIONS (4)
  - BODY TEMPERATURE INCREASED [None]
  - BACK PAIN [None]
  - BLOOD PRESSURE INCREASED [None]
  - HEART RATE INCREASED [None]
